FAERS Safety Report 20687845 (Version 1)
Quarter: 2022Q2

REPORT INFORMATION
  Report Type: Spontaneous
  Country: NO (occurrence: NO)
  Receive Date: 20220408
  Receipt Date: 20220408
  Transmission Date: 20220721
  Serious: Yes (Other)
  Sender: FDA-Public Use
  Company Number: None

PATIENT
  Age: 22 Year
  Sex: Female

DRUGS (1)
  1. RITALIN [Suspect]
     Active Substance: METHYLPHENIDATE HYDROCHLORIDE
     Indication: Attention deficit hyperactivity disorder
     Dosage: 20 MG, Q12H
     Route: 048
     Dates: start: 20220104, end: 20220114

REACTIONS (8)
  - Angioedema [Recovered/Resolved]
  - Heart rate increased [Recovered/Resolved]
  - Peripheral coldness [Recovered/Resolved]
  - Myalgia [Recovered/Resolved]
  - Sinusitis [Recovering/Resolving]
  - Tremor [Recovered/Resolved]
  - Body temperature increased [Not Recovered/Not Resolved]
  - Headache [Recovered/Resolved]

NARRATIVE: CASE EVENT DATE: 20220104
